FAERS Safety Report 21164604 (Version 5)
Quarter: 2023Q1

REPORT INFORMATION
  Report Type: Spontaneous
  Country: JP (occurrence: JP)
  Receive Date: 20220803
  Receipt Date: 20230204
  Transmission Date: 20230418
  Serious: Yes (Hospitalization, Other)
  Sender: FDA-Public Use
  Company Number: JP-ABBVIE-22K-087-4482406-00

PATIENT
  Age: 83 Year
  Sex: Female

DRUGS (2)
  1. CARBIDOPA\LEVODOPA [Suspect]
     Active Substance: CARBIDOPA\LEVODOPA
     Indication: Parkinson^s disease
     Route: 050
     Dates: start: 20220602
  2. CARBIDOPA\LEVODOPA [Suspect]
     Active Substance: CARBIDOPA\LEVODOPA

REACTIONS (14)
  - Blindness [Unknown]
  - Altered state of consciousness [Unknown]
  - Thirst [Unknown]
  - Salivary hypersecretion [Unknown]
  - Eye haemorrhage [Recovered/Resolved]
  - Gait inability [Unknown]
  - Dyspnoea [Unknown]
  - Tremor [Unknown]
  - Insomnia [Unknown]
  - Volvulus [Unknown]
  - Ileus [Recovered/Resolved]
  - Small intestinal perforation [Unknown]
  - Thrombosis [Unknown]
  - Vomiting [Unknown]

NARRATIVE: CASE EVENT DATE: 20220609
